FAERS Safety Report 4385033-6 (Version None)
Quarter: 2004Q2

REPORT INFORMATION
  Report Type: 
  Country: None (occurrence: None)
  Receive Date: 20040625
  Receipt Date: 20040420
  Transmission Date: 20050107
  Serious: Yes (Hospitalization)
  Sender: FDA-Public Use
  Company Number: 2004JP000859

PATIENT
  Age: 17 Month
  Sex: Male

DRUGS (1)
  1. AMOXICILLIN [Suspect]
     Indication: OTITIS MEDIA
     Dosage: 80MGK PER DAY
     Route: 048
     Dates: start: 20031224

REACTIONS (2)
  - EPSTEIN-BARR VIRUS INFECTION [None]
  - URTICARIA [None]
